FAERS Safety Report 6874674-X (Version None)
Quarter: 2010Q3

REPORT INFORMATION
  Report Type: 
  Country: None (occurrence: None)
  Receive Date: 20100722
  Receipt Date: 20100719
  Transmission Date: 20110219
  Serious: Yes (Hospitalization)
  Sender: FDA-Public Use
  Company Number: SP01030

PATIENT
  Age: 66 Year
  Sex: Female

DRUGS (8)
  1. OSMOPREP [Suspect]
     Indication: BOWEL PREPARATION
     Dosage: 28 TABLETS IN ONE DAY, ORAL
     Route: 048
     Dates: start: 20061107, end: 20061107
  2. OSMOPREP [Suspect]
     Indication: COLONOSCOPY
     Dosage: 28 TABLETS IN ONE DAY, ORAL
     Route: 048
     Dates: start: 20061107, end: 20061107
  3. ZESTRIL [Concomitant]
  4. ISORBIDE [Concomitant]
  5. LASIX [Concomitant]
  6. FOSAMAX [Concomitant]
  7. ASPIRIN [Concomitant]
  8. KLOR-CON [Concomitant]

REACTIONS (8)
  - ASTHENIA [None]
  - DIZZINESS [None]
  - HYPOTENSION [None]
  - LUNG NEOPLASM MALIGNANT [None]
  - METABOLIC DISORDER [None]
  - PLEURAL EFFUSION [None]
  - PULMONARY EMBOLISM [None]
  - RENAL FAILURE ACUTE [None]
